FAERS Safety Report 22373693 (Version 3)
Quarter: 2023Q4

REPORT INFORMATION
  Report Type: Report from Study
  Country: CA (occurrence: CA)
  Receive Date: 20230526
  Receipt Date: 20231110
  Transmission Date: 20240110
  Serious: Yes (Other)
  Sender: FDA-Public Use
  Company Number: CA-CHIESI-2023CHF02629

PATIENT
  Age: 68 Year
  Sex: Male
  Weight: 77.11 kg

DRUGS (3)
  1. DEFERIPRONE [Suspect]
     Active Substance: DEFERIPRONE
     Indication: Haemosiderosis
     Dosage: 3000 MILLIGRAM, QD
     Route: 048
     Dates: start: 20180918
  2. DEFERIPRONE [Suspect]
     Active Substance: DEFERIPRONE
     Dosage: 2 DOSAGE FORM, QD
     Route: 048
     Dates: start: 202303, end: 202304
  3. DEFERIPRONE [Suspect]
     Active Substance: DEFERIPRONE
     Dosage: 1000 MILLIGRAM, QD
     Route: 048
     Dates: start: 202308

REACTIONS (8)
  - Renal impairment [Recovering/Resolving]
  - Asthenia [Recovered/Resolved]
  - Illness [Recovered/Resolved]
  - Illness [Recovered/Resolved]
  - Feeling hot [Recovered/Resolved]
  - Fatigue [Recovered/Resolved]
  - Malaise [Recovered/Resolved]
  - Off label use [Not Recovered/Not Resolved]

NARRATIVE: CASE EVENT DATE: 20180918
